FAERS Safety Report 23152389 (Version 1)
Quarter: 2023Q4

REPORT INFORMATION
  Report Type: Spontaneous
  Country: US (occurrence: PR)
  Receive Date: 20231107
  Receipt Date: 20231107
  Transmission Date: 20240110
  Serious: Yes (Other)
  Sender: FDA-Public Use
  Company Number: US-GLAXOSMITHKLINE-USCH2023052314

PATIENT

DRUGS (1)
  1. ADVIL [Suspect]
     Active Substance: IBUPROFEN
     Indication: Product used for unknown indication
     Dosage: DAILY USE

REACTIONS (1)
  - Renal injury [Unknown]
